FAERS Safety Report 8508282 (Version 2)
Quarter: 2013Q1

REPORT INFORMATION
  Report Type: Spontaneous
  Country: US (occurrence: US)
  Receive Date: 20120412
  Receipt Date: 20130326
  Transmission Date: 20140127
  Serious: No
  Sender: FDA-Public Use
  Company Number: US-ASTRAZENECA-2011SE19990

PATIENT
  Age: 56 Year
  Sex: Female

DRUGS (1)
  1. NEXIUM [Suspect]
     Route: 048

REACTIONS (7)
  - Gastrooesophageal reflux disease [Unknown]
  - Dysphagia [Unknown]
  - Pain [Unknown]
  - Drug dose omission [Unknown]
  - Incorrect dose administered [Unknown]
  - Drug effect incomplete [Unknown]
  - Intentional drug misuse [Unknown]
